FAERS Safety Report 14783476 (Version 1)
Quarter: 2018Q2

REPORT INFORMATION
  Report Type: Spontaneous
  Country: DE (occurrence: DE)
  Receive Date: 20180420
  Receipt Date: 20180420
  Transmission Date: 20180711
  Serious: Yes (Other)
  Sender: FDA-Public Use
  Company Number: DE-TEVA-2018-DE-882316

PATIENT
  Age: 72 Year
  Sex: Female

DRUGS (2)
  1. ARTICAINE/EPINEPHRINE [Concomitant]
     Active Substance: ARTICAINE\EPINEPHRINE
     Indication: LOCAL ANAESTHESIA
     Route: 065
  2. CLINDAMYCIN. [Suspect]
     Active Substance: CLINDAMYCIN
     Indication: ENDOCARDITIS PROPHYLAXIS
     Route: 051

REACTIONS (1)
  - Type IV hypersensitivity reaction [Recovered/Resolved]
